FAERS Safety Report 25731933 (Version 4)
Quarter: 2025Q3

REPORT INFORMATION
  Report Type: Spontaneous
  Country: CA (occurrence: CA)
  Receive Date: 20250827
  Receipt Date: 20250905
  Transmission Date: 20251021
  Serious: Yes (Other)
  Sender: PFIZER
  Company Number: CA-PFIZER INC-202500114824

PATIENT
  Age: 82 Year
  Sex: Male

DRUGS (4)
  1. IXIFI [Suspect]
     Active Substance: INFLIXIMAB-QBTX
     Indication: Crohn^s disease
     Route: 042
     Dates: start: 20250605
  2. IXIFI [Suspect]
     Active Substance: INFLIXIMAB-QBTX
     Route: 042
     Dates: start: 20250730
  3. BENADRYL [Concomitant]
     Active Substance: DIPHENHYDRAMINE HYDROCHLORIDE
     Indication: Premedication
  4. PREDNISONE [Concomitant]
     Active Substance: PREDNISONE
     Dates: start: 20240906

REACTIONS (17)
  - Gastric ulcer [Recovering/Resolving]
  - Drug ineffective [Unknown]
  - Condition aggravated [Not Recovered/Not Resolved]
  - Erythema [Unknown]
  - Feeling hot [Not Recovered/Not Resolved]
  - Drug intolerance [Unknown]
  - Pain [Not Recovered/Not Resolved]
  - Discomfort [Unknown]
  - Skin reaction [Recovering/Resolving]
  - Skin plaque [Recovered/Resolved]
  - Influenza [Unknown]
  - Pyrexia [Unknown]
  - Nasal congestion [Not Recovered/Not Resolved]
  - Productive cough [Not Recovered/Not Resolved]
  - Abdominal pain upper [Unknown]
  - Hypertension [Unknown]
  - Off label use [Unknown]

NARRATIVE: CASE EVENT DATE: 20250101
